FAERS Safety Report 9525361 (Version 1)
Quarter: 2013Q3

REPORT INFORMATION
  Report Type: Spontaneous
  Country: JP (occurrence: JP)
  Receive Date: 20130916
  Receipt Date: 20130916
  Transmission Date: 20140515
  Serious: Yes (Life-Threatening)
  Sender: FDA-Public Use
  Company Number: JP-ASTRAZENECA-2013SE68823

PATIENT
  Sex: 0

DRUGS (7)
  1. CARBOCAINE [Suspect]
     Indication: EPIDURAL ANAESTHESIA
     Route: 064
  2. DIPRIVAN [Suspect]
     Indication: MAINTENANCE OF ANAESTHESIA
     Route: 064
  3. FENTANYL [Suspect]
     Indication: MAINTENANCE OF ANAESTHESIA
     Route: 064
  4. REMIFENTANIL [Suspect]
     Indication: MAINTENANCE OF ANAESTHESIA
     Route: 064
  5. THIAMYLAL [Suspect]
     Indication: INDUCTION OF ANAESTHESIA
     Route: 064
  6. ROCURONIUM [Suspect]
     Indication: INDUCTION OF ANAESTHESIA
     Route: 064
  7. SEVOFLURANE [Suspect]
     Indication: MAINTENANCE OF ANAESTHESIA
     Route: 064

REACTIONS (3)
  - Heart sounds abnormal [Recovered/Resolved]
  - Apgar score low [Recovered/Resolved]
  - Bradycardia [Recovered/Resolved]
